FAERS Safety Report 26166567 (Version 1)
Quarter: 2025Q4

REPORT INFORMATION
  Report Type: Spontaneous
  Country: EU (occurrence: EU)
  Receive Date: 20251217
  Receipt Date: 20251217
  Transmission Date: 20260119
  Serious: Yes (Other)
  Sender: SUNOVION
  Company Number: None

PATIENT
  Age: 37 Year
  Sex: Female

DRUGS (5)
  1. ESTRADIOL\NORETHINDRONE ACETATE\RELUGOLIX [Suspect]
     Active Substance: ESTRADIOL\NORETHINDRONE ACETATE\RELUGOLIX
     Indication: Endometriosis
     Dosage: 1 DF, QD (1X1) (STRENGTH: 40 MG/1 MG/0.5 MG)
     Dates: start: 20241226
  2. AMITRIPTYLINE [Concomitant]
     Active Substance: AMITRIPTYLINE
  3. MIRTAZAPINE [Concomitant]
     Active Substance: MIRTAZAPINE
     Dosage: UNK
  4. OXYCODONE HYDROCHLORIDE [Concomitant]
     Active Substance: OXYCODONE HYDROCHLORIDE
  5. TARGINIQ ER [Concomitant]
     Active Substance: NALOXONE HYDROCHLORIDE\OXYCODONE HYDROCHLORIDE
     Dosage: 10 MG/5 MG

REACTIONS (1)
  - Spontaneous haematoma [Not Recovered/Not Resolved]

NARRATIVE: CASE EVENT DATE: 20241227
